FAERS Safety Report 18012606 (Version 1)
Quarter: 2020Q3

REPORT INFORMATION
  Report Type: Spontaneous
  Country: US (occurrence: US)
  Receive Date: 20200710
  Receipt Date: 20200710
  Transmission Date: 20201103
  Serious: Yes (Death)
  Sender: FDA-Public Use
  Company Number: None

PATIENT
  Age: 41 Year
  Sex: Female
  Weight: 140 kg

DRUGS (6)
  1. INSULIN [Concomitant]
     Active Substance: INSULIN NOS
     Dates: start: 20200702, end: 20200706
  2. FENTANYL. [Concomitant]
     Active Substance: FENTANYL
     Dates: start: 20200701, end: 20200706
  3. KETAMINE [Concomitant]
     Active Substance: KETAMINE
     Dates: start: 20200702, end: 20200706
  4. MIDAZOLAM. [Concomitant]
     Active Substance: MIDAZOLAM
     Dates: start: 20200702, end: 20200706
  5. REMDESIVIR. [Suspect]
     Active Substance: REMDESIVIR
     Indication: COVID-19
     Route: 041
     Dates: start: 20200701, end: 20200702
  6. CISATRACURIUM. [Concomitant]
     Active Substance: CISATRACURIUM
     Dates: start: 20200701, end: 20200702

REACTIONS (1)
  - Death [None]

NARRATIVE: CASE EVENT DATE: 20200706
